FAERS Safety Report 13347403 (Version 1)
Quarter: 2017Q1

REPORT INFORMATION
  Report Type: Spontaneous
  Country: IT (occurrence: IT)
  Receive Date: 20170317
  Receipt Date: 20170317
  Transmission Date: 20170428
  Serious: Yes (Death)
  Sender: FDA-Public Use
  Company Number: IT-FRESENIUS KABI-FK201702160

PATIENT
  Sex: Male

DRUGS (8)
  1. METHOTREXATE (MANUFACTURER UNKNOWN) [Suspect]
     Active Substance: METHOTREXATE
     Indication: EXTRAGONADAL PRIMARY GERM CELL TUMOUR
     Route: 065
  2. CYCLOPHOSPHAMIDE. [Suspect]
     Active Substance: CYCLOPHOSPHAMIDE
     Indication: EXTRAGONADAL PRIMARY GERM CELL TUMOUR
  3. ONCOVIN [Suspect]
     Active Substance: VINCRISTINE SULFATE
     Indication: EXTRAGONADAL PRIMARY GERM CELL TUMOUR
  4. G-CSF [Concomitant]
     Active Substance: GRANULOCYTE COLONY-STIMULATING FACTOR NOS
     Indication: HUMAN CHORIONIC GONADOTROPIN
     Route: 065
  5. METHOTREXATE (MANUFACTURER UNKNOWN) [Suspect]
     Active Substance: METHOTREXATE
     Route: 065
  6. ETOPOSIDE (MANUFACTURER UNKNOWN) [Suspect]
     Active Substance: ETOPOSIDE
     Indication: EXTRAGONADAL PRIMARY GERM CELL TUMOUR
     Route: 065
  7. LEUCOVORIN CALCIUM (MANUFACTURER UNKNOWN) [Suspect]
     Active Substance: LEUCOVORIN CALCIUM
     Indication: EXTRAGONADAL PRIMARY GERM CELL TUMOUR
     Route: 065
  8. ACTINOMYCIN D [Suspect]
     Active Substance: DACTINOMYCIN
     Indication: EXTRAGONADAL PRIMARY GERM CELL TUMOUR
     Route: 040

REACTIONS (1)
  - Cerebral haemorrhage [Fatal]
